FAERS Safety Report 10531187 (Version 1)
Quarter: 2014Q4

REPORT INFORMATION
  Report Type: Spontaneous
  Country: GB (occurrence: GB)
  Receive Date: 20141021
  Receipt Date: 20141021
  Transmission Date: 20150529
  Serious: Yes (Death, Other)
  Sender: FDA-Public Use
  Company Number: GB-BRISTOL-MYERS SQUIBB COMPANY-21500699

PATIENT
  Age: 66 Year
  Sex: Male

DRUGS (3)
  1. ABILIFY [Suspect]
     Active Substance: ARIPIPRAZOLE
  2. CITALOPRAM [Suspect]
     Active Substance: CITALOPRAM HYDROBROMIDE
     Dosage: 20 MILLIGRAM
  3. RISPERDAL CONSTA [Suspect]
     Active Substance: RISPERIDONE
     Indication: SCHIZOPHRENIA
     Dates: start: 2007

REACTIONS (6)
  - Myocardial ischaemia [Fatal]
  - Dysstasia [Unknown]
  - Metabolic disorder [Fatal]
  - Faecal incontinence [Unknown]
  - Ketoacidosis [Fatal]
  - Parkinsonism [Unknown]

NARRATIVE: CASE EVENT DATE: 20140404
